FAERS Safety Report 17637230 (Version 1)
Quarter: 2020Q2

REPORT INFORMATION
  Report Type: Spontaneous
  Country: US (occurrence: US)
  Receive Date: 20200407
  Receipt Date: 20200407
  Transmission Date: 20200713
  Serious: Yes (Other)
  Sender: FDA-Public Use
  Company Number: US-AMNEAL PHARMACEUTICALS-2020-AMRX-00983

PATIENT
  Sex: Female

DRUGS (1)
  1. OSELTAMIVIR PHOSPHATE. [Suspect]
     Active Substance: OSELTAMIVIR PHOSPHATE
     Indication: PRODUCT USED FOR UNKNOWN INDICATION
     Dosage: 1 CAPSULES, 2 /DAY FOR 5 DAYS
     Route: 048

REACTIONS (4)
  - Dyspnoea [Unknown]
  - Malaise [Unknown]
  - Tremor [Unknown]
  - Vomiting [Unknown]
